FAERS Safety Report 4831840-2 (Version None)
Quarter: 2005Q4

REPORT INFORMATION
  Report Type: 
  Country: None (occurrence: None)
  Receive Date: 20051116
  Receipt Date: 20051104
  Transmission Date: 20060501
  Serious: Yes (Other)
  Sender: FDA-Public Use
  Company Number: 2005-BP-19198RO

PATIENT
  Age: 34 Year
  Sex: Male

DRUGS (3)
  1. DIAZEPAM [Suspect]
     Indication: SEDATION
     Dosage: 20 MG OVER 2 DAYS, IV
     Route: 042
  2. LORAZEPAM [Suspect]
     Indication: SEDATION
     Dosage: 730 MG OVER 2 DAYS, IV
     Route: 042
  3. PROPYLENE GLYCOL [Suspect]
     Dosage: 306 GM OVER 2 DAYS, IV
     Route: 042

REACTIONS (4)
  - BLOOD BICARBONATE DECREASED [None]
  - BLOOD OSMOLARITY INCREASED [None]
  - DRUG TOXICITY [None]
  - METABOLIC DISORDER [None]
